FAERS Safety Report 9684484 (Version 2)
Quarter: 2013Q4

REPORT INFORMATION
  Report Type: Spontaneous
  Country: US (occurrence: US)
  Receive Date: 20131112
  Receipt Date: 20131209
  Transmission Date: 20140711
  Serious: Yes (Hospitalization)
  Sender: FDA-Public Use
  Company Number: US-B.I. PHARMACEUTICALS,INC./RIDGEFIELD-2013-BI-36147BP

PATIENT
  Age: 94 Year
  Sex: Female
  Weight: 67 kg

DRUGS (5)
  1. PRADAXA [Suspect]
     Indication: ATRIAL FIBRILLATION
     Dosage: 150 MG
     Dates: start: 2012, end: 20131025
  2. AMLODIPINE [Concomitant]
     Indication: HYPERTENSION
  3. LASIX [Concomitant]
     Indication: CARDIAC FAILURE CONGESTIVE
  4. PROTONIX [Concomitant]
     Indication: GASTROINTESTINAL HAEMORRHAGE
  5. GLIPIZIDE [Concomitant]
     Indication: DIABETES MELLITUS

REACTIONS (1)
  - Large intestinal haemorrhage [Not Recovered/Not Resolved]
